FAERS Safety Report 25363070 (Version 1)
Quarter: 2025Q2

REPORT INFORMATION
  Report Type: Spontaneous
  Country: US (occurrence: None)
  Receive Date: 20250527
  Receipt Date: 20250527
  Transmission Date: 20250717
  Serious: Yes (Other)
  Sender: FDA-CTU
  Company Number: None

PATIENT
  Age: 34 Year
  Sex: Female

DRUGS (1)
  1. ESTRADIOL VALERATE [Suspect]
     Active Substance: ESTRADIOL VALERATE
     Dosage: FREQUENCY : DAILY;?

REACTIONS (4)
  - Abortion spontaneous [None]
  - Incorrect dose administered [None]
  - Product dispensing error [None]
  - Exposure during pregnancy [None]
